FAERS Safety Report 24835266 (Version 3)
Quarter: 2025Q3

REPORT INFORMATION
  Report Type: Spontaneous
  Country: US (occurrence: US)
  Receive Date: 20250113
  Receipt Date: 20250711
  Transmission Date: 20251021
  Serious: No
  Sender: SHENZHEN TECHDOW PHARMACEUTICAL
  Company Number: US-Techdow-2024Techdow000243

PATIENT
  Age: 26 Year
  Sex: Male
  Weight: 105.23 kg

DRUGS (2)
  1. ENOXAPARIN SODIUM [Suspect]
     Active Substance: ENOXAPARIN SODIUM
     Indication: Thrombosis prophylaxis
     Dates: start: 20241129
  2. ENOXAPARIN SODIUM [Suspect]
     Active Substance: ENOXAPARIN SODIUM
     Indication: Thrombosis prophylaxis
     Dates: start: 20241204

REACTIONS (2)
  - Seroma [Unknown]
  - Product quality issue [Unknown]

NARRATIVE: CASE EVENT DATE: 20241204
